FAERS Safety Report 11649713 (Version 1)
Quarter: 2015Q4

REPORT INFORMATION
  Report Type: Report from Study
  Country: US (occurrence: US)
  Receive Date: 20151021
  Receipt Date: 20151021
  Transmission Date: 20160304
  Serious: Yes (Hospitalization)
  Sender: FDA-Public Use
  Company Number: US-APOTEX-2015AP009312

PATIENT
  Age: 42 Year
  Sex: Female
  Weight: 78 kg

DRUGS (2)
  1. DEFERIPRONE [Suspect]
     Active Substance: DEFERIPRONE
     Indication: HAEMOCHROMATOSIS
  2. DEFERIPRONE [Suspect]
     Active Substance: DEFERIPRONE
     Indication: THALASSAEMIA
     Dosage: 58 MG/KG, QD
     Route: 048
     Dates: start: 20111222, end: 201505

REACTIONS (1)
  - Mastectomy [Recovering/Resolving]

NARRATIVE: CASE EVENT DATE: 201505
